FAERS Safety Report 20297841 (Version 2)
Quarter: 2023Q2

REPORT INFORMATION
  Report Type: Report from Study
  Country: FR (occurrence: FR)
  Receive Date: 20220105
  Receipt Date: 20230622
  Transmission Date: 20230721
  Serious: Yes (Other)
  Sender: FDA-Public Use
  Company Number: FR-EMA-DD-20211216-kakwani_d-110724

PATIENT
  Age: 63 Year
  Sex: Female

DRUGS (19)
  1. METHOTREXATE [Suspect]
     Active Substance: METHOTREXATE
     Indication: Product used for unknown indication
     Dosage: INDUCTION II; DAY 2
     Route: 065
     Dates: start: 20210123, end: 20210123
  2. METHOTREXATE [Suspect]
     Active Substance: METHOTREXATE
     Dosage: INDUCTION 1: DAY 2
     Route: 065
     Dates: start: 20201216, end: 20201216
  3. VINCRISTINE SULFATE [Suspect]
     Active Substance: VINCRISTINE SULFATE
     Indication: Product used for unknown indication
     Dosage: INDUCRTION 1: DAY 1
     Route: 065
     Dates: start: 20201215, end: 20201215
  4. VINCRISTINE SULFATE [Suspect]
     Active Substance: VINCRISTINE SULFATE
     Dosage: INDUCTION I; DAY 15
     Route: 065
     Dates: start: 20201229, end: 20201229
  5. VINCRISTINE SULFATE [Suspect]
     Active Substance: VINCRISTINE SULFATE
     Dosage: INDUCTION I; DAY 8
     Route: 065
     Dates: start: 20201222, end: 20201222
  6. VINCRISTINE SULFATE [Suspect]
     Active Substance: VINCRISTINE SULFATE
     Dosage: INDUCTION I; DAY 22
     Route: 065
     Dates: start: 20210105, end: 20210105
  7. CYCLOPHOSPHAMIDE [Suspect]
     Active Substance: CYCLOPHOSPHAMIDE
     Indication: Product used for unknown indication
     Dosage: INDUCTION II; DAY 2
     Route: 065
     Dates: start: 20210123, end: 20210123
  8. CYCLOPHOSPHAMIDE [Suspect]
     Active Substance: CYCLOPHOSPHAMIDE
     Dosage: INDUCTION II; DAY 3
     Route: 065
     Dates: start: 20210124, end: 20210124
  9. CYCLOPHOSPHAMIDE [Suspect]
     Active Substance: CYCLOPHOSPHAMIDE
     Dosage: INDUCTION 2; DAY 1
     Route: 065
     Dates: start: 20210122, end: 20210122
  10. CYTARABINE [Suspect]
     Active Substance: CYTARABINE
     Indication: Product used for unknown indication
     Dosage: INDUCTION II DAY 2
     Route: 065
     Dates: start: 20210123
  11. CYTARABINE [Suspect]
     Active Substance: CYTARABINE
     Dosage: INDUCTION I DAY 2
     Route: 065
     Dates: start: 20201216
  12. INOTUZUMAB OZOGAMICIN [Suspect]
     Active Substance: INOTUZUMAB OZOGAMICIN
     Indication: Product used for unknown indication
     Dosage: INDUCTION 1: DAY 1
     Route: 065
     Dates: start: 20201215, end: 20201215
  13. INOTUZUMAB OZOGAMICIN [Suspect]
     Active Substance: INOTUZUMAB OZOGAMICIN
     Dosage: INDUCTION II; DAY 8
     Route: 065
     Dates: start: 20210129, end: 20210129
  14. INOTUZUMAB OZOGAMICIN [Suspect]
     Active Substance: INOTUZUMAB OZOGAMICIN
     Dosage: INDUCTION II; DAY 1
     Route: 065
     Dates: start: 20210122, end: 20210122
  15. INOTUZUMAB OZOGAMICIN [Suspect]
     Active Substance: INOTUZUMAB OZOGAMICIN
     Dosage: INDUCTION I; DAY 15
     Route: 065
     Dates: start: 20201229, end: 20201229
  16. INOTUZUMAB OZOGAMICIN [Suspect]
     Active Substance: INOTUZUMAB OZOGAMICIN
     Dosage: INDUCTION I; DAY 8
     Route: 065
     Dates: start: 20201222, end: 20201222
  17. CYCLOPHOSPHAMIDE [Suspect]
     Active Substance: CYCLOPHOSPHAMIDE
     Indication: Product used for unknown indication
     Dosage: INDUCTION 2; DAY 1
     Route: 065
     Dates: start: 20210122, end: 20210122
  18. CYCLOPHOSPHAMIDE [Suspect]
     Active Substance: CYCLOPHOSPHAMIDE
     Dosage: INDUCTION II; DAY 2
     Route: 065
     Dates: start: 20210123, end: 20210123
  19. CYCLOPHOSPHAMIDE [Suspect]
     Active Substance: CYCLOPHOSPHAMIDE
     Dosage: INDUCTION II; DAY 3
     Route: 065
     Dates: start: 20210124, end: 20210124

REACTIONS (1)
  - Jugular vein thrombosis [Recovered/Resolved]
